FAERS Safety Report 10199534 (Version 1)
Quarter: 2014Q2

REPORT INFORMATION
  Report Type: Spontaneous
  Country: IT (occurrence: IT)
  Receive Date: 20140527
  Receipt Date: 20140527
  Transmission Date: 20141212
  Serious: Yes (Hospitalization)
  Sender: FDA-Public Use
  Company Number: IT-WATSON-2013-25282

PATIENT
  Age: 34 Year
  Sex: Female

DRUGS (2)
  1. SEROQUEL [Suspect]
     Indication: INTENTIONAL OVERDOSE
     Dosage: UNK UNK, UNKNOWN
     Route: 048
     Dates: start: 20110630, end: 20130630
  2. SERTRALINE HYDROCHLORIDE (UNKNOWN) [Suspect]
     Indication: INTENTIONAL OVERDOSE
     Dosage: 1000 MG, UNKNOWN
     Route: 048
     Dates: start: 20110630, end: 20130630

REACTIONS (2)
  - Psychomotor skills impaired [Recovered/Resolved]
  - Drug abuse [Recovered/Resolved]
